FAERS Safety Report 12131046 (Version 4)
Quarter: 2016Q3

REPORT INFORMATION
  Report Type: Spontaneous
  Country: US (occurrence: US)
  Receive Date: 20160301
  Receipt Date: 20160705
  Transmission Date: 20161109
  Serious: No
  Sender: FDA-Public Use
  Company Number: US-PFIZER INC-2016111074

PATIENT
  Age: 65 Year
  Sex: Female
  Weight: 64 kg

DRUGS (3)
  1. PREMPRO [Suspect]
     Active Substance: ESTROGENS, CONJUGATED\MEDROXYPROGESTERONE ACETATE
     Indication: MENOPAUSAL SYMPTOMS
     Dosage: 0.45-1.5 MG, 1X/DAY, IN THE EVENING
     Route: 048
  2. PREMPRO [Suspect]
     Active Substance: ESTROGENS, CONJUGATED\MEDROXYPROGESTERONE ACETATE
     Dosage: UNK (0.45/1.5MG)
     Dates: start: 2013
  3. PROTONIX [Concomitant]
     Active Substance: PANTOPRAZOLE SODIUM
     Indication: ABDOMINAL DISCOMFORT
     Dosage: 40 MG, 1X/DAY, IN THE MORNING
     Dates: start: 2003

REACTIONS (3)
  - Muscle spasms [Recovered/Resolved]
  - Bone pain [Recovered/Resolved]
  - Headache [Recovered/Resolved]

NARRATIVE: CASE EVENT DATE: 201602
